FAERS Safety Report 9894259 (Version 2)
Quarter: 2014Q1

REPORT INFORMATION
  Report Type: Spontaneous
  Country: CA (occurrence: CA)
  Receive Date: 20140213
  Receipt Date: 20140306
  Transmission Date: 20141002
  Serious: Yes (Hospitalization)
  Sender: FDA-Public Use
  Company Number: CA-GLAXOSMITHKLINE-A1060106A

PATIENT
  Age: 64 Year
  Sex: Female

DRUGS (7)
  1. ADVAIR [Suspect]
     Indication: CHRONIC OBSTRUCTIVE PULMONARY DISEASE
     Dosage: 1PUFF TWICE PER DAY
     Route: 055
  2. SPIRIVA [Concomitant]
     Dosage: 1PUFF PER DAY
  3. VENLAFAXINE [Concomitant]
  4. ASPIRIN [Concomitant]
  5. SPIRONOLACTONE [Concomitant]
  6. APO-FUROSEMIDE [Concomitant]
  7. DILTIAZEM [Concomitant]

REACTIONS (4)
  - Apparent death [Unknown]
  - Depressed level of consciousness [Unknown]
  - Cellulitis [Unknown]
  - Constipation [Unknown]
